FAERS Safety Report 8264843-9 (Version None)
Quarter: 2012Q2

REPORT INFORMATION
  Report Type: 
  Country: None (occurrence: None)
  Receive Date: 20120406
  Receipt Date: 20120402
  Transmission Date: 20120825
  Serious: Yes (Death)
  Sender: FDA-Public Use
  Company Number: US-INCYTE CORPORATION-2012IN000503

PATIENT
  Sex: Female

DRUGS (14)
  1. PLAVIX [Concomitant]
  2. JAKAFI [Suspect]
     Dosage: 10 MG, BID
     Route: 048
  3. DILTIAZEM HCL [Concomitant]
  4. FOLIC ACID [Concomitant]
  5. METOPROLOL TARTRATE [Concomitant]
  6. MEGACE [Concomitant]
  7. EXJADE [Concomitant]
  8. DIGOXIN [Concomitant]
  9. LASIX [Concomitant]
  10. ARANESP [Concomitant]
  11. OMEPRAZOLE [Concomitant]
  12. LEVOTHYROXINE SODIUM [Concomitant]
  13. CHOLESTYRAMINE [Concomitant]
  14. NEUPOGEN [Concomitant]

REACTIONS (1)
  - DEATH [None]
